FAERS Safety Report 8454089-3 (Version None)
Quarter: 2012Q2

REPORT INFORMATION
  Report Type: 
  Country: None (occurrence: None)
  Receive Date: 20120620
  Receipt Date: 20120614
  Transmission Date: 20120825
  Serious: Yes (Hospitalization)
  Sender: FDA-Public Use
  Company Number: AR-ABBOTT-12P-007-0942562-00

PATIENT
  Sex: Female

DRUGS (1)
  1. HUMIRA [Suspect]
     Indication: RHEUMATOID ARTHRITIS
     Route: 058
     Dates: start: 20111125, end: 20120507

REACTIONS (5)
  - HOSPITALISATION [None]
  - COUGH [None]
  - ASTHENIA [None]
  - TACHYCARDIA [None]
  - BRONCHITIS [None]
